FAERS Safety Report 15597943 (Version 1)
Quarter: 2018Q4

REPORT INFORMATION
  Report Type: Spontaneous
  Country: JP (occurrence: JP)
  Receive Date: 20181108
  Receipt Date: 20181108
  Transmission Date: 20190205
  Serious: Yes (Death, Other)
  Sender: FDA-Public Use
  Company Number: JP-ABBVIE-18S-087-2541519-00

PATIENT
  Age: 32 Year
  Sex: Male

DRUGS (16)
  1. POPSCAINE [Suspect]
     Active Substance: LEVOBUPIVACAINE HYDROCHLORIDE
     Indication: ANALGESIC THERAPY
     Dosage: 70 ML (1 IN 1 DAY)
     Route: 058
     Dates: start: 20160602, end: 20160602
  2. PRIMPERAN [Concomitant]
     Active Substance: METOCLOPRAMIDE HYDROCHLORIDE
     Indication: PROPHYLAXIS OF NAUSEA AND VOMITING
     Dosage: 20 MG AT 2 AMPOULES
     Route: 042
     Dates: start: 20160602, end: 20160602
  3. ULTIVA [Concomitant]
     Active Substance: REMIFENTANIL HYDROCHLORIDE
     Indication: ANALGESIC THERAPY
     Dosage: 0.1  0.2 MCG/KG/MIN
     Route: 041
     Dates: start: 20160602, end: 20160602
  4. ROPION [Concomitant]
     Active Substance: FLURBIPROFEN AXETIL
     Indication: ANALGESIC THERAPY
     Route: 041
     Dates: start: 20160602, end: 20160602
  5. EPHEDRINE HYDROCHLORIDE [Concomitant]
     Active Substance: EPHEDRINE HYDROCHLORIDE
     Indication: PRODUCT USED FOR UNKNOWN INDICATION
     Dosage: 36 MG
     Route: 042
     Dates: start: 20160602, end: 20160602
  6. DIPRIVAN [Suspect]
     Active Substance: PROPOFOL
     Indication: MAINTENANCE OF ANAESTHESIA
     Dosage: 3  4 MCG/ML (1 IN 1 DAY)
     Route: 017
     Dates: start: 20160602, end: 20160602
  7. PETHIDINE HYDROCHLORIDE TAKEDA [Concomitant]
     Indication: CHILLS
     Route: 042
     Dates: start: 20160602, end: 20160602
  8. ONOACT [Concomitant]
     Active Substance: LANDIOLOL HYDROCHLORIDE
     Indication: TACHYCARDIA
     Route: 042
     Dates: start: 20160602, end: 20160602
  9. DEXART [Concomitant]
     Active Substance: DEXAMETHASONE SODIUM PHOSPHATE
     Indication: PROPHYLAXIS OF NAUSEA AND VOMITING
     Route: 042
     Dates: start: 20160602, end: 20160602
  10. GASTER [Concomitant]
     Active Substance: FAMOTIDINE
     Indication: GASTRIC PH DECREASED
     Route: 042
     Dates: start: 20160602, end: 20160602
  11. ACELIO BAG [Concomitant]
     Indication: ANALGESIC THERAPY
     Route: 041
     Dates: start: 20160602, end: 20160602
  12. ESLAX [Concomitant]
     Active Substance: ROCURONIUM BROMIDE
     Indication: HYPOTONIA
     Dosage: 40  120 MG
     Route: 042
     Dates: start: 20160602, end: 20160602
  13. NEO-SYNESTIN KOWA [Concomitant]
     Indication: PRODUCT USED FOR UNKNOWN INDICATION
     Dosage: 1.2 MG
     Route: 042
     Dates: start: 20160602, end: 20160602
  14. FOSTOIN [Suspect]
     Active Substance: FOSPHENYTOIN SODIUM
     Indication: SEIZURE PROPHYLAXIS
     Dosage: 750  2,250 MG (3 IN 1 DAY)
     Route: 017
     Dates: start: 20160602, end: 20160602
  15. FENTANYL CITRATE. [Concomitant]
     Active Substance: FENTANYL CITRATE
     Indication: ANALGESIC THERAPY
     Dosage: 450 - 900 MCG
     Route: 042
     Dates: start: 20160602, end: 20160602
  16. BRIDION [Concomitant]
     Active Substance: SUGAMMADEX
     Indication: MUSCLE RELAXANT THERAPY
     Route: 042
     Dates: start: 20160602, end: 20160602

REACTIONS (1)
  - Depressed level of consciousness [Recovered/Resolved]

NARRATIVE: CASE EVENT DATE: 20160602
